FAERS Safety Report 6162147-1 (Version None)
Quarter: 2009Q2

REPORT INFORMATION
  Report Type: 
  Country: None (occurrence: None)
  Receive Date: 20090421
  Receipt Date: 20090408
  Transmission Date: 20091009
  Serious: Yes (Other)
  Sender: FDA-Public Use
  Company Number: US-PFIZER INC-2006101974

PATIENT
  Sex: Female

DRUGS (8)
  1. PROVERA [Suspect]
     Indication: HORMONE REPLACEMENT THERAPY
     Dosage: 2.5 MG, UNK
     Route: 048
     Dates: start: 19960101, end: 20020101
  2. PROVERA [Suspect]
     Indication: MENOPAUSE
  3. PREMARIN [Suspect]
     Indication: HORMONE REPLACEMENT THERAPY
     Dosage: 1.25 MG, UNK
     Route: 065
     Dates: start: 19960101, end: 20010101
  4. PREMARIN [Suspect]
     Indication: MENOPAUSE
  5. FEMHRT [Suspect]
     Indication: HORMONE REPLACEMENT THERAPY
     Dosage: 1/5 UNKNOWN
     Route: 065
     Dates: start: 20020401, end: 20030201
  6. FEMHRT [Suspect]
     Indication: MENOPAUSE
  7. ESTROGENS [Suspect]
     Indication: MENOPAUSE
     Dosage: UNK
     Dates: start: 19940101, end: 19950101
  8. THYROID TAB [Concomitant]
     Indication: HORMONE REPLACEMENT THERAPY
     Dosage: UNK
     Dates: start: 19580101, end: 20060101

REACTIONS (1)
  - BREAST CANCER [None]
